FAERS Safety Report 4346017-7 (Version None)
Quarter: 2004Q2

REPORT INFORMATION
  Report Type: 
  Country: None (occurrence: None)
  Receive Date: 20040426
  Receipt Date: 20040319
  Transmission Date: 20050107
  Serious: Yes (Other)
  Sender: FDA-Public Use
  Company Number: PHEH2004US03258

PATIENT
  Age: 71 Year
  Sex: Male

DRUGS (12)
  1. AREDIA [Suspect]
     Indication: PROSTATE CANCER METASTATIC
     Dosage: 90 MG, QMO
     Dates: start: 19990915, end: 20031121
  2. TAXOTERE [Concomitant]
     Dosage: 50 OR42MG/DAY1,8,15 OF 28DAY CYC
     Dates: start: 20011005, end: 20020313
  3. GEMZAR [Concomitant]
     Dates: start: 20020102, end: 20020306
  4. HYDROCORT [Concomitant]
     Dates: start: 20011011, end: 20020701
  5. DECADRON [Concomitant]
     Dosage: 4 MG/Q CHEMO
     Dates: start: 20011005, end: 20020313
  6. DECADRON [Concomitant]
     Dosage: 4 MG, QMO
     Dates: start: 20020429, end: 20031121
  7. DECADRON [Concomitant]
     Dosage: 4MG/ Q3MOS
     Dates: start: 20040121
  8. CYTOXAN [Concomitant]
     Dosage: 25 MG, BID
  9. INTERFERON ALFA [Concomitant]
     Dosage: IMIU/QHS
     Dates: start: 20020401, end: 20030319
  10. LEUPRORELIN [Concomitant]
     Dosage: IM DOSE
     Dates: start: 20011005, end: 20020701
  11. LEUKINE [Concomitant]
     Dates: start: 20011127
  12. CYTADREN [Concomitant]
     Dosage: 250 UNK, BID
     Dates: start: 20011011, end: 20020701

REACTIONS (15)
  - ABSCESS ORAL [None]
  - ALPHA HAEMOLYTIC STREPTOCOCCAL INFECTION [None]
  - BACTEROIDES INFECTION [None]
  - BONE DENSITY DECREASED [None]
  - FIBROUS DYSPLASIA OF BONE [None]
  - IMPAIRED HEALING [None]
  - INFECTION [None]
  - OSTEOMYELITIS CHRONIC [None]
  - OSTEONECROSIS [None]
  - PERIODONTAL DISEASE [None]
  - POST PROCEDURAL COMPLICATION [None]
  - PRIMARY SEQUESTRUM [None]
  - SINUS DISORDER [None]
  - TOOTH EXTRACTION [None]
  - WOUND DEBRIDEMENT [None]
